FAERS Safety Report 9470129 (Version 1)
Quarter: 2013Q3

REPORT INFORMATION
  Report Type: Spontaneous
  Country: US (occurrence: US)
  Receive Date: 20130822
  Receipt Date: 20130822
  Transmission Date: 20140515
  Serious: No
  Sender: FDA-Public Use
  Company Number: US-ASTRAZENECA-2013SE52033

PATIENT
  Age: 51 Year
  Sex: Female
  Weight: 71.7 kg

DRUGS (2)
  1. ANASTRAZOLE TABLETS 1MG [Suspect]
     Indication: BREAST CANCER STAGE I
     Route: 048
     Dates: start: 201303
  2. BENADRYL [Concomitant]
     Indication: SLEEP DISORDER

REACTIONS (5)
  - General symptom [Unknown]
  - Insomnia [Unknown]
  - Adverse event [Unknown]
  - Arthralgia [Unknown]
  - Joint stiffness [Unknown]
